FAERS Safety Report 21002713 (Version 1)
Quarter: 2022Q2

REPORT INFORMATION
  Report Type: Spontaneous
  Country: US (occurrence: US)
  Receive Date: 20220624
  Receipt Date: 20220624
  Transmission Date: 20220720
  Serious: No
  Sender: FDA-Public Use
  Company Number: US-BioHaven Pharmaceuticals-2022BHV001463

PATIENT
  Age: 57 Year
  Sex: Female
  Weight: 90.800 kg

DRUGS (2)
  1. NURTEC ODT [Suspect]
     Active Substance: RIMEGEPANT SULFATE
     Indication: Migraine
     Dosage: ONCE A DAY, IF SHE HAS A MIGRAINE (PROBABLY HAVE ABOUT ONE OR TWO MIGRAINES A WEEK)
     Route: 048
     Dates: start: 2021
  2. NURTEC ODT [Suspect]
     Active Substance: RIMEGEPANT SULFATE
     Dosage: ONCE A DAY, IF SHE HAS A MIGRAINE (PROBABLY HAVE ABOUT ONE OR TWO MIGRAINES A WEEK)
     Route: 065
     Dates: start: 2021

REACTIONS (1)
  - Drug ineffective [Unknown]
